FAERS Safety Report 12110302 (Version 1)
Quarter: 2016Q1

REPORT INFORMATION
  Report Type: Spontaneous
  Country: US (occurrence: US)
  Receive Date: 20160224
  Receipt Date: 20160224
  Transmission Date: 20160526
  Serious: Yes (Hospitalization)
  Sender: FDA-Public Use
  Company Number: US-GILEAD-2016-0199732

PATIENT
  Sex: Male

DRUGS (1)
  1. HARVONI [Suspect]
     Active Substance: LEDIPASVIR\SOFOSBUVIR
     Indication: HEPATITIS C
     Dosage: UNK
     Route: 065
     Dates: start: 20151023, end: 20160114

REACTIONS (4)
  - Abdominal pain upper [Unknown]
  - Headache [Unknown]
  - Epistaxis [Unknown]
  - Lethargy [Unknown]

NARRATIVE: CASE EVENT DATE: 20151025
